FAERS Safety Report 23227406 (Version 3)
Quarter: 2024Q1

REPORT INFORMATION
  Report Type: Spontaneous
  Country: SE (occurrence: SE)
  Receive Date: 20231124
  Receipt Date: 20240104
  Transmission Date: 20240410
  Serious: Yes (Death, Hospitalization, Disabling, Other)
  Sender: FDA-Public Use
  Company Number: SE-ROCHE-3456819

PATIENT
  Age: 79 Year
  Sex: Female
  Weight: 61.2 kg

DRUGS (22)
  1. VINCRISTINE SULFATE [Suspect]
     Active Substance: VINCRISTINE SULFATE
     Indication: Product used for unknown indication
     Dosage: UNK
     Dates: start: 20230707
  2. RITUXIMAB [Suspect]
     Active Substance: RITUXIMAB
     Indication: Follicular lymphoma stage IV
     Dosage: UNK UNK, CYCLIC (C1D1-C1D22)
     Route: 042
     Dates: start: 20210322, end: 20210413
  3. RITUXIMAB [Suspect]
     Active Substance: RITUXIMAB
     Dosage: 375 MG/M2, CYCLIC (C2D1-C5D1)
     Route: 042
     Dates: start: 20210420, end: 20210713
  4. LENALIDOMIDE [Suspect]
     Active Substance: LENALIDOMIDE
     Indication: Follicular lymphoma stage IV
     Dosage: UNK UNK, CYCLIC (C1)
     Route: 048
     Dates: start: 20210322, end: 20210411
  5. LENALIDOMIDE [Suspect]
     Active Substance: LENALIDOMIDE
     Dosage: UNK UNK, CYCLIC (C2)
     Route: 048
     Dates: start: 20210420, end: 20210510
  6. LENALIDOMIDE [Suspect]
     Active Substance: LENALIDOMIDE
     Dosage: UNK UNK, CYCLIC (C3)
     Route: 048
     Dates: start: 20210518, end: 20210531
  7. LENALIDOMIDE [Suspect]
     Active Substance: LENALIDOMIDE
     Dosage: UNK UNK, CYCLIC (C4)
     Route: 048
     Dates: start: 20210615, end: 20210705
  8. LENALIDOMIDE [Suspect]
     Active Substance: LENALIDOMIDE
     Dosage: UNK, CYCLIC (C5)
     Route: 048
     Dates: start: 20210714, end: 20210802
  9. LENALIDOMIDE [Suspect]
     Active Substance: LENALIDOMIDE
     Dosage: UNK UNK, CYCLIC (C6)
     Route: 048
     Dates: start: 20210810, end: 20210830
  10. LENALIDOMIDE [Suspect]
     Active Substance: LENALIDOMIDE
     Dosage: UNK UNK, CYCLIC (C7)
     Route: 048
     Dates: start: 20210907, end: 20210927
  11. LENALIDOMIDE [Suspect]
     Active Substance: LENALIDOMIDE
     Dosage: UNK UNK, CYCLIC (C8)
     Route: 048
     Dates: start: 20211005, end: 20211025
  12. LENALIDOMIDE [Suspect]
     Active Substance: LENALIDOMIDE
     Dosage: 10 MG, CYCLIC (C9)
     Route: 048
     Dates: start: 20211102, end: 20211122
  13. DOXORUBICIN HYDROCHLORIDE [Suspect]
     Active Substance: DOXORUBICIN HYDROCHLORIDE
     Indication: Product used for unknown indication
     Dosage: UNK
     Dates: start: 20230707
  14. PREDNISONE [Suspect]
     Active Substance: PREDNISONE
     Indication: Product used for unknown indication
     Dosage: UNK
     Route: 065
     Dates: start: 20230707
  15. CYCLOPHOSPHAMIDE [Suspect]
     Active Substance: CYCLOPHOSPHAMIDE
     Indication: Product used for unknown indication
     Dosage: UNK
     Dates: start: 20230707
  16. EPCORITAMAB [Suspect]
     Active Substance: EPCORITAMAB
     Indication: Follicular lymphoma stage IV
     Dosage: 0.16 MG, SINGLE (C1D1)
     Route: 058
     Dates: start: 20210322, end: 20210322
  17. EPCORITAMAB [Suspect]
     Active Substance: EPCORITAMAB
     Dosage: 0.8 MG, SINGLE (C1D8)
     Route: 058
     Dates: start: 20210329, end: 20210329
  18. EPCORITAMAB [Suspect]
     Active Substance: EPCORITAMAB
     Dosage: 48 MG, CYCLIC (C1D15-C3D22)
     Route: 058
     Dates: start: 20210406, end: 20210608
  19. EPCORITAMAB [Suspect]
     Active Substance: EPCORITAMAB
     Dosage: UNK UNK, CYCLIC (C4D1-C9D15)
     Route: 058
     Dates: start: 20210615, end: 20211116
  20. EPCORITAMAB [Suspect]
     Active Substance: EPCORITAMAB
     Dosage: 48 MG, CYCLIC (C10D1-C25D1)
     Route: 058
     Dates: start: 20211130, end: 20230124
  21. ZOLPIDEM [Concomitant]
     Active Substance: ZOLPIDEM TARTRATE
     Dosage: UNK
     Dates: start: 20220222
  22. OMEPRAZOLE [Concomitant]
     Active Substance: OMEPRAZOLE
     Dosage: UNK
     Dates: start: 20210316

REACTIONS (1)
  - Progressive multifocal leukoencephalopathy [Fatal]

NARRATIVE: CASE EVENT DATE: 20231019
